FAERS Safety Report 11940028 (Version 1)
Quarter: 2016Q1

REPORT INFORMATION
  Report Type: Spontaneous
  Country: BR (occurrence: BR)
  Receive Date: 20160122
  Receipt Date: 20160122
  Transmission Date: 20160526
  Serious: Yes (Other)
  Sender: FDA-Public Use
  Company Number: BR-PFIZER INC-2016029214

PATIENT
  Age: 77 Year
  Sex: Female
  Weight: 85 kg

DRUGS (1)
  1. LYRICA [Suspect]
     Active Substance: PREGABALIN
     Indication: FIBROMYALGIA
     Dosage: UNK
     Dates: start: 201401

REACTIONS (11)
  - Dry mouth [Unknown]
  - Urinary incontinence [Unknown]
  - Muscle contractions involuntary [Unknown]
  - Pain [Unknown]
  - Onychoclasis [Unknown]
  - Urine flow decreased [Unknown]
  - Abdominal pain [Unknown]
  - Oligomenorrhoea [Not Recovered/Not Resolved]
  - Hair disorder [Unknown]
  - Furuncle [Unknown]
  - Blood urine present [Unknown]

NARRATIVE: CASE EVENT DATE: 20160111
